FAERS Safety Report 4434144-5 (Version None)
Quarter: 2004Q3

REPORT INFORMATION
  Report Type: 
  Country: None (occurrence: None)
  Receive Date: 20040826
  Receipt Date: 20040804
  Transmission Date: 20050211
  Serious: Yes (Hospitalization)
  Sender: FDA-Public Use
  Company Number: PHBS2004JP10435

PATIENT
  Age: 64 Year
  Sex: Female
  Weight: 50 kg

DRUGS (6)
  1. DICLOFENAC SODIUM [Suspect]
     Indication: PYREXIA
     Dosage: 50 MG, QD
     Dates: start: 20010501
  2. CLINDAMYCIN [Concomitant]
     Indication: PYREXIA
  3. ETODOLAC [Concomitant]
     Dosage: 400 MG/DAY
  4. ACTARIT [Concomitant]
     Dosage: 150 MG/DAY
  5. MIZORIBINE [Suspect]
     Dosage: 150 MG/DAY
     Dates: start: 20000601
  6. PREDNISOLONE [Concomitant]
     Dosage: 10 MG/DAY

REACTIONS (24)
  - ANAEMIA [None]
  - ANTINUCLEAR ANTIBODY POSITIVE [None]
  - ARTHRALGIA [None]
  - BETA 2 MICROGLOBULIN URINE INCREASED [None]
  - BLOOD CREATININE INCREASED [None]
  - BLOOD UREA INCREASED [None]
  - BLOOD URINE [None]
  - C-REACTIVE PROTEIN INCREASED [None]
  - EPISTAXIS [None]
  - FIBRIN DEGRADATION PRODUCTS INCREASED [None]
  - HYPERURICAEMIA [None]
  - INFLAMMATION [None]
  - MELAENA [None]
  - MUSCULOSKELETAL STIFFNESS [None]
  - NAUSEA [None]
  - PROTEIN URINE PRESENT [None]
  - PURPURA [None]
  - RENAL FAILURE ACUTE [None]
  - RHEUMATOID FACTOR INCREASED [None]
  - SJOGREN'S SYNDROME [None]
  - THROMBOCYTOPENIA [None]
  - VOMITING [None]
  - WHITE BLOOD CELL COUNT INCREASED [None]
  - WHITE BLOOD CELLS URINE POSITIVE [None]
